FAERS Safety Report 5813185-7 (Version None)
Quarter: 2008Q3

REPORT INFORMATION
  Report Type: 
  Country: None (occurrence: None)
  Receive Date: 20080717
  Receipt Date: 20080402
  Transmission Date: 20090109
  Serious: No
  Sender: FDA-Public Use
  Company Number: A0718788A

PATIENT
  Age: 45 Year
  Sex: Female

DRUGS (1)
  1. NICORETTE [Suspect]
     Dates: start: 20080331, end: 20080331

REACTIONS (4)
  - CHOKING SENSATION [None]
  - ORAL DISCOMFORT [None]
  - OROPHARYNGEAL DISCOMFORT [None]
  - THROAT IRRITATION [None]
